FAERS Safety Report 5721545-8 (Version None)
Quarter: 2008Q2

REPORT INFORMATION
  Report Type: 
  Country: None (occurrence: None)
  Receive Date: 20080429
  Receipt Date: 20070219
  Transmission Date: 20081010
  Serious: No
  Sender: FDA-Public Use
  Company Number: US-ASTRAZENECA-2007UW03275

PATIENT
  Age: 35 Year
  Sex: Female

DRUGS (6)
  1. NEXIUM [Suspect]
     Indication: GASTROOESOPHAGEAL REFLUX DISEASE
     Route: 048
     Dates: start: 20070216, end: 20070218
  2. ZANTAC [Concomitant]
     Indication: GASTROOESOPHAGEAL REFLUX DISEASE
     Dates: end: 20070216
  3. PHENERGAN [Concomitant]
     Indication: NAUSEA
     Dosage: 1/2 OF ONE PILL
     Dates: start: 20070216, end: 20070217
  4. CARDIZEM [Concomitant]
  5. ASPIRIN [Concomitant]
  6. CELEXA [Concomitant]

REACTIONS (1)
  - TACHYCARDIA [None]
